FAERS Safety Report 25240881 (Version 1)
Quarter: 2025Q2

REPORT INFORMATION
  Report Type: Spontaneous
  Country: GB (occurrence: GB)
  Receive Date: 20250425
  Receipt Date: 20250425
  Transmission Date: 20250717
  Serious: Yes (Hospitalization, Other)
  Sender: ELI LILLY AND COMPANY
  Company Number: None

PATIENT
  Sex: Female

DRUGS (1)
  1. MOUNJARO [Suspect]
     Active Substance: TIRZEPATIDE
     Indication: Product used for unknown indication
     Route: 065

REACTIONS (6)
  - Transient ischaemic attack [Unknown]
  - Dizziness [Recovered/Resolved]
  - Dehydration [Unknown]
  - Heart rate irregular [Unknown]
  - Disorientation [Unknown]
  - Hypoacusis [Unknown]

NARRATIVE: CASE EVENT DATE: 20241201
